FAERS Safety Report 6171603-1 (Version None)
Quarter: 2009Q2

REPORT INFORMATION
  Report Type: 
  Country: None (occurrence: None)
  Receive Date: 20090429
  Receipt Date: 20090417
  Transmission Date: 20091009
  Serious: Yes (Other)
  Sender: FDA-Public Use
  Company Number: CH-ELI_LILLY_AND_COMPANY-CH200904001879

PATIENT
  Age: 55 Year
  Sex: Male
  Weight: 85 kg

DRUGS (3)
  1. GEMZAR [Suspect]
     Indication: BLADDER TRANSITIONAL CELL CARCINOMA
     Dosage: 2000 MG, DAY 1, DAY 8 AND DAY 15
     Route: 042
     Dates: start: 20090119
  2. CISPLATIN [Concomitant]
     Indication: BLADDER TRANSITIONAL CELL CARCINOMA
     Dosage: UNK, UNKNOWN
     Route: 065
     Dates: start: 20090119
  3. CARBOPLATIN [Concomitant]
     Indication: TRANSITIONAL CELL CARCINOMA
     Dosage: 600 MG, DAY 1
     Route: 042
     Dates: start: 20090218

REACTIONS (2)
  - HEARING IMPAIRED [None]
  - TINNITUS [None]
